FAERS Safety Report 15795294 (Version 1)
Quarter: 2019Q1

REPORT INFORMATION
  Report Type: Spontaneous
  Country: US (occurrence: US)
  Receive Date: 20190107
  Receipt Date: 20190107
  Transmission Date: 20190417
  Serious: Yes (Death, Hospitalization, Other)
  Sender: FDA-Public Use
  Company Number: US-PFIZER INC-2019006918

PATIENT
  Age: 70 Year
  Sex: Female

DRUGS (3)
  1. DILTIAZEM [DILTIAZEM HYDROCHLORIDE] [Suspect]
     Active Substance: DILTIAZEM HYDROCHLORIDE
     Dosage: UNK (EXTENDED RELEASE)
     Route: 048
  2. AMLODIPINE BESILATE [Suspect]
     Active Substance: AMLODIPINE BESYLATE
     Dosage: UNK
     Route: 048
  3. MIRTAZAPINE. [Suspect]
     Active Substance: MIRTAZAPINE
     Dosage: UNK
     Route: 048

REACTIONS (1)
  - Completed suicide [Fatal]

NARRATIVE: CASE EVENT DATE: 2017
